FAERS Safety Report 10639340 (Version 2)
Quarter: 2015Q1

REPORT INFORMATION
  Report Type: Spontaneous
  Country: SI (occurrence: SI)
  Receive Date: 20141208
  Receipt Date: 20150129
  Transmission Date: 20150720
  Serious: Yes (Other)
  Sender: FDA-Public Use
  Company Number: SI-AMGEN-SVNSP2014094134

PATIENT
  Age: 66 Year
  Sex: Male
  Weight: 81 kg

DRUGS (17)
  1. CYCLOPHOSPHAMIDE. [Concomitant]
     Active Substance: CYCLOPHOSPHAMIDE
     Dosage: UNK
  2. CALCIUM CARBONATE. [Concomitant]
     Active Substance: CALCIUM CARBONATE
     Dosage: UNK
  3. NAKOM [Concomitant]
     Indication: PARKINSON^S DISEASE
     Dosage: UNK
     Route: 048
  4. NEULASTA [Suspect]
     Active Substance: PEGFILGRASTIM
     Indication: PROPHYLAXIS
  5. ZOMETA [Concomitant]
     Active Substance: ZOLEDRONIC ACID
     Dosage: UNK
     Dates: start: 201204
  6. NEBILET [Concomitant]
     Active Substance: NEBIVOLOL
     Dosage: UNK
  7. CISPLATIN. [Concomitant]
     Active Substance: CISPLATIN
     Dosage: UNK
     Route: 042
  8. VITAMIN D3 [Concomitant]
     Active Substance: CHOLECALCIFEROL
     Dosage: 20GTTS/WEEK
  9. OMNIC OCAS [Concomitant]
     Active Substance: TAMSULOSIN HYDROCHLORIDE
     Indication: BENIGN PROSTATIC HYPERPLASIA
     Dosage: UNK MG, Q4
     Route: 048
  10. VINCRISTINE [Concomitant]
     Active Substance: VINCRISTINE
     Dosage: UNK
  11. XGEVA [Suspect]
     Active Substance: DENOSUMAB
     Indication: METASTASES TO BONE
  12. ADRIAMYCIN [Concomitant]
     Active Substance: DOXORUBICIN HYDROCHLORIDE
     Dosage: UNK
  13. DEXAMETHASONE. [Concomitant]
     Active Substance: DEXAMETHASONE
     Dosage: 8 MG, QWK DAY OF CHT
  14. XGEVA [Suspect]
     Active Substance: DENOSUMAB
     Indication: LUNG NEOPLASM MALIGNANT
     Dosage: 120 MG, Q6WK
     Route: 058
     Dates: start: 20130416, end: 20140121
  15. CARBOPLATIN W/ETOPOSIDE [Concomitant]
     Dosage: UNK
     Route: 042
     Dates: start: 201204
  16. NEULASTA [Suspect]
     Active Substance: PEGFILGRASTIM
     Indication: NEUTROPENIA
     Dosage: UNK
     Route: 065
     Dates: start: 201204
  17. MIRAPEXIN [Concomitant]
     Active Substance: PRAMIPEXOLE
     Indication: PARKINSON^S DISEASE
     Dosage: 1.05 MG, UNK
     Route: 048

REACTIONS (24)
  - Lung neoplasm malignant [Recovering/Resolving]
  - Hypocalcaemia [Recovered/Resolved]
  - Bone marrow oedema [Recovered/Resolved]
  - Cellulitis [Recovering/Resolving]
  - Oral surgery [Unknown]
  - Cough [Recovering/Resolving]
  - Disease progression [Recovering/Resolving]
  - Swelling face [Recovering/Resolving]
  - Parkinson^s disease [Recovering/Resolving]
  - Neutropenia [Recovering/Resolving]
  - Bone pain [Recovered/Resolved]
  - Metastases to liver [Recovering/Resolving]
  - Osteonecrosis of jaw [Recovered/Resolved]
  - Bedridden [Unknown]
  - Back pain [Recovering/Resolving]
  - Chest pain [Recovering/Resolving]
  - Arthralgia [Recovered/Resolved]
  - Tooth extraction [Unknown]
  - Pain [Recovering/Resolving]
  - Pyrexia [Recovering/Resolving]
  - Swelling [Recovering/Resolving]
  - Abdominal distension [Recovering/Resolving]
  - Gait disturbance [Recovering/Resolving]
  - Fatigue [Recovered/Resolved]

NARRATIVE: CASE EVENT DATE: 201207
